FAERS Safety Report 10581491 (Version 1)
Quarter: 2014Q4

REPORT INFORMATION
  Report Type: Spontaneous
  Country: GB (occurrence: None)
  Receive Date: 20141110
  Receipt Date: 20141110
  Transmission Date: 20150529
  Serious: Yes (Death)
  Sender: FDA-Public Use
  Company Number: GH-H14001-14-01496

PATIENT
  Age: 89 Year
  Sex: Female

DRUGS (1)
  1. CO-AMOXICLAV [Suspect]
     Active Substance: AMOXICILLIN\CLAVULANIC ACID
     Indication: PRODUCT USED FOR UNKNOWN INDICATION

REACTIONS (5)
  - Hypersensitivity [None]
  - Cardiac arrest [None]
  - Drug hypersensitivity [None]
  - Documented hypersensitivity to administered product [None]
  - Malaise [None]

NARRATIVE: CASE EVENT DATE: 201408
